FAERS Safety Report 16757427 (Version 2)
Quarter: 2019Q3

REPORT INFORMATION
  Report Type: Report from Study
  Country: None (occurrence: US)
  Receive Date: 20190830
  Receipt Date: 20190927
  Transmission Date: 20191005
  Serious: Yes (Other)
  Sender: FDA-Public Use
  Company Number: US-ABBVIE-19K-163-2901485-00

PATIENT
  Age: 45 Year
  Sex: Male

DRUGS (1)
  1. HUMIRA [Suspect]
     Active Substance: ADALIMUMAB
     Indication: CROHN^S DISEASE
     Route: 058

REACTIONS (10)
  - Eye inflammation [Not Recovered/Not Resolved]
  - Ocular sarcoidosis [Not Recovered/Not Resolved]
  - Headache [Recovered/Resolved]
  - Autoimmune eye disorder [Not Recovered/Not Resolved]
  - Autoimmune eye disorder [Not Recovered/Not Resolved]
  - Eye inflammation [Not Recovered/Not Resolved]
  - Headache [Unknown]
  - Eyelid ptosis [Not Recovered/Not Resolved]
  - Eyelid ptosis [Not Recovered/Not Resolved]
  - Ocular sarcoidosis [Not Recovered/Not Resolved]

NARRATIVE: CASE EVENT DATE: 201811
